FAERS Safety Report 6695343-5 (Version None)
Quarter: 2010Q2

REPORT INFORMATION
  Report Type: 
  Country: None (occurrence: None)
  Receive Date: 20100422
  Receipt Date: 20100422
  Transmission Date: 20101027
  Serious: Yes (Death)
  Sender: FDA-Public Use
  Company Number: None

PATIENT
  Age: 83 Year
  Sex: Male
  Weight: 61.2356 kg

DRUGS (3)
  1. KIONEX [Suspect]
     Indication: HYPERKALAEMIA
     Dosage: 15GM POWDER -4LEVEL TSP.- ONCE A DAY PO
     Route: 048
     Dates: start: 20081203, end: 20081230
  2. ARANESP [Concomitant]
  3. PROCRIT [Concomitant]

REACTIONS (3)
  - ANAEMIA [None]
  - CARDIAC FAILURE CONGESTIVE [None]
  - MEDICATION ERROR [None]
